FAERS Safety Report 20517366 (Version 2)
Quarter: 2022Q1

REPORT INFORMATION
  Report Type: Report from Study
  Country: US (occurrence: US)
  Receive Date: 20220225
  Receipt Date: 20220310
  Transmission Date: 20220423
  Serious: Yes (Hospitalization, Other)
  Sender: FDA-Public Use
  Company Number: US-SA-SAC20220221001245

PATIENT
  Age: 69 Year
  Sex: Female

DRUGS (1)
  1. SARILUMAB [Suspect]
     Active Substance: SARILUMAB
     Indication: Rheumatoid arthritis
     Dosage: 200 MG, QOW
     Route: 058
     Dates: start: 20210129

REACTIONS (3)
  - Pericarditis [Recovered/Resolved]
  - Myocarditis [Recovering/Resolving]
  - Pericardial effusion [Recovering/Resolving]

NARRATIVE: CASE EVENT DATE: 20220205
